FAERS Safety Report 14125020 (Version 1)
Quarter: 2017Q4

REPORT INFORMATION
  Report Type: Other
  Country: FR (occurrence: FR)
  Receive Date: 20171025
  Receipt Date: 20171025
  Transmission Date: 20180321
  Serious: Yes (Hospitalization)
  Sender: FDA-Public Use
  Company Number: FR-TAKEDA-2017MPI009409

PATIENT
  Age: 79 Year
  Sex: Female

DRUGS (2)
  1. VELCADE [Suspect]
     Active Substance: BORTEZOMIB
     Indication: PLASMA CELL MYELOMA
     Dosage: 3.5 MG, UNK
     Route: 042
     Dates: start: 2016
  2. VELCADE [Suspect]
     Active Substance: BORTEZOMIB
     Dosage: 3.5 MG, UNK
     Route: 042
     Dates: start: 20170911, end: 20170911

REACTIONS (1)
  - Colitis [Recovered/Resolved]

NARRATIVE: CASE EVENT DATE: 20170929
